FAERS Safety Report 16778169 (Version 1)
Quarter: 2019Q3

REPORT INFORMATION
  Report Type: Spontaneous
  Country: US (occurrence: US)
  Receive Date: 20190905
  Receipt Date: 20190905
  Transmission Date: 20191005
  Serious: No
  Sender: FDA-Public Use
  Company Number: US-AMGEN-USASP2019141509

PATIENT
  Age: 62 Year
  Sex: Female

DRUGS (2)
  1. NEULASTA [Suspect]
     Active Substance: PEGFILGRASTIM
     Dosage: 4 MILLIGRAM, Q2WK
     Route: 065
     Dates: start: 20190829
  2. NEULASTA [Suspect]
     Active Substance: PEGFILGRASTIM
     Indication: NEUTROPENIA
     Dosage: 6 MILLIGRAM, Q2WK
     Route: 065

REACTIONS (3)
  - Bone pain [Unknown]
  - White blood cell count increased [Unknown]
  - Off label use [Unknown]

NARRATIVE: CASE EVENT DATE: 20190829
